FAERS Safety Report 8641504 (Version 3)
Quarter: 2013Q3

REPORT INFORMATION
  Report Type: Spontaneous
  Country: US (occurrence: None)
  Receive Date: 20120618
  Receipt Date: 20130815
  Transmission Date: 20140515
  Serious: Yes (Other)
  Sender: FDA-Public Use
  Company Number: ADR-2012-00682

PATIENT
  Sex: Male

DRUGS (5)
  1. BACLOFEN [Suspect]
     Indication: PAIN
     Dosage: 51 MCG/DY
  2. BACLOFEN [Suspect]
     Indication: POST LAMINECTOMY SYNDROME
     Dosage: 51 MCG/DY
  3. BACLOFEN [Suspect]
     Indication: SURGICAL FAILURE
     Dosage: 51 MCG/DY
  4. BUPIVACAINE [Concomitant]
  5. MORPHINE [Concomitant]

REACTIONS (10)
  - No therapeutic response [None]
  - Device failure [None]
  - Mood swings [None]
  - Nasopharyngitis [None]
  - Abdominal discomfort [None]
  - Nausea [None]
  - Depression [None]
  - Tremor [None]
  - Device occlusion [None]
  - Back pain [None]
